FAERS Safety Report 7254095-0 (Version None)
Quarter: 2011Q1

REPORT INFORMATION
  Report Type: 
  Country: None (occurrence: None)
  Receive Date: 20110129
  Receipt Date: 20100423
  Transmission Date: 20110831
  Serious: No
  Sender: FDA-Public Use
  Company Number: US-ABBOTT-10P-163-0640374-00

PATIENT
  Sex: Male
  Weight: 111.23 kg

DRUGS (3)
  1. UNKNOWN MEDICATIONS [Concomitant]
     Indication: DIABETES MELLITUS
  2. UNKNOWN MEDICATIONS [Concomitant]
     Indication: HYPERTENSION
  3. HUMIRA [Suspect]
     Indication: ANKYLOSING SPONDYLITIS
     Dates: start: 20100421

REACTIONS (1)
  - FATIGUE [None]
